FAERS Safety Report 8154836-4 (Version None)
Quarter: 2012Q1

REPORT INFORMATION
  Report Type: 
  Country: None (occurrence: None)
  Receive Date: 20120221
  Receipt Date: 20120214
  Transmission Date: 20120608
  Serious: Yes (Disabling)
  Sender: FDA-Public Use
  Company Number: PHHY2011AU103390

PATIENT
  Sex: Female
  Weight: 71 kg

DRUGS (9)
  1. PRILOSEC [Concomitant]
     Dosage: UNK UKN, UNK
     Route: 048
  2. TEMSIROLIMUS [Concomitant]
     Dosage: UNK UKN, UNK
     Route: 048
  3. ZOLEDRONOC ACID [Suspect]
     Indication: OSTEOPOROSIS
     Dosage: 5 MG, UNK
     Route: 042
     Dates: start: 20100101
  4. PLAQUENIL [Concomitant]
     Indication: RHEUMATOID ARTHRITIS
     Dosage: 200 MG, BID, FOR TEN YEARS
     Route: 048
  5. ASPIRIN [Concomitant]
     Dosage: UNK UKN, UNK
     Route: 048
  6. PERINDOPRIL ERBUMINE [Concomitant]
     Dosage: UNK UKN, UNK
     Route: 048
  7. ZOLEDRONOC ACID [Suspect]
     Dosage: 5 MG, UNK
     Route: 042
     Dates: start: 20111113
  8. SIMVASTATIN [Concomitant]
     Dosage: UNK UKN, UNK
     Route: 048
  9. NOTEN [Concomitant]
     Route: 048

REACTIONS (1)
  - MANTLE CELL LYMPHOMA [None]
